FAERS Safety Report 7337332-3 (Version None)
Quarter: 2011Q1

REPORT INFORMATION
  Report Type: 
  Country: None (occurrence: None)
  Receive Date: 20110308
  Receipt Date: 20090821
  Transmission Date: 20110831
  Serious: No
  Sender: FDA-Public Use
  Company Number: 2009BI026665

PATIENT
  Age: 28 Year
  Sex: Female

DRUGS (2)
  1. TYSABRI [Suspect]
     Indication: MULTIPLE SCLEROSIS
     Route: 042
     Dates: start: 20070524, end: 20090101
  2. TYSABRI [Suspect]
     Route: 042
     Dates: start: 20090101

REACTIONS (7)
  - MEMORY IMPAIRMENT [None]
  - ANGINA PECTORIS [None]
  - HYPOAESTHESIA [None]
  - MULTIPLE SCLEROSIS RELAPSE [None]
  - SENSORY DISTURBANCE [None]
  - DYSPNOEA [None]
  - GAIT DISTURBANCE [None]
